FAERS Safety Report 8495432-9 (Version None)
Quarter: 2012Q3

REPORT INFORMATION
  Report Type: 
  Country: None (occurrence: None)
  Receive Date: 20120709
  Receipt Date: 20120704
  Transmission Date: 20120928
  Serious: Yes (Other)
  Sender: FDA-Public Use
  Company Number: CO-PFIZER INC-2012115443

PATIENT
  Age: 13 Year
  Sex: Male

DRUGS (5)
  1. GENOTROPIN [Suspect]
     Indication: BODY HEIGHT BELOW NORMAL
  2. ENALAPRIL [Concomitant]
     Indication: RENAL FAILURE CHRONIC
     Dosage: UNK
  3. GENOTROPIN [Suspect]
     Indication: RENAL FAILURE CHRONIC
     Dosage: UNK
     Dates: end: 20111001
  4. OMEPRAZOLE [Concomitant]
     Dosage: UNK
  5. NITROFURANTOIN [Concomitant]
     Indication: RENAL FAILURE CHRONIC
     Dosage: UNK

REACTIONS (1)
  - RENAL TRANSPLANT [None]
